FAERS Safety Report 5085752-2 (Version None)
Quarter: 2006Q3

REPORT INFORMATION
  Report Type: 
  Country: None (occurrence: None)
  Receive Date: 20060817
  Receipt Date: 20060807
  Transmission Date: 20061208
  Serious: Yes (Other)
  Sender: FDA-Public Use
  Company Number: 2006085194

PATIENT
  Age: 61 Year
  Sex: Female

DRUGS (9)
  1. LIPITOR [Suspect]
     Indication: HYPERLIPIDAEMIA
     Dosage: 80 MG (80 MG, 1 IN 1 D), ORAL
     Route: 048
     Dates: start: 20050901
  2. ALL OTHER THERAPEUTIC PRODUCTS (ALL OTHER THERAPEUTIC PRODUCTS) [Suspect]
     Indication: BLOOD CHOLESTEROL INCREASED
     Dosage: ORAL
     Route: 048
     Dates: start: 20060101, end: 20060101
  3. HYDROCHLOROTHIAZIDE [Concomitant]
  4. LISINOPRIL [Concomitant]
  5. PLAVIX [Concomitant]
  6. PROCARDIA XL [Concomitant]
  7. POTASSIUM CHLORIDE [Concomitant]
  8. ASPIRIN [Concomitant]
  9. CALCIUM GLUCONATE [Concomitant]

REACTIONS (4)
  - BLOOD POTASSIUM DECREASED [None]
  - DIZZINESS [None]
  - DRUG DISPENSING ERROR [None]
  - URINARY TRACT INFECTION [None]
